FAERS Safety Report 15985751 (Version 5)
Quarter: 2020Q2

REPORT INFORMATION
  Report Type: Report from Study
  Country: US (occurrence: US)
  Receive Date: 20190220
  Receipt Date: 20200407
  Transmission Date: 20200713
  Serious: Yes (Hospitalization, Other)
  Sender: FDA-Public Use
  Company Number: PHEH2019US006992

PATIENT
  Sex: Female

DRUGS (2)
  1. TASIGNA [Suspect]
     Active Substance: NILOTINIB
     Dosage: UNK
     Route: 048
  2. TASIGNA [Suspect]
     Active Substance: NILOTINIB
     Indication: PRODUCT USED FOR UNKNOWN INDICATION
     Route: 048

REACTIONS (7)
  - Back pain [Unknown]
  - Atrial fibrillation [Unknown]
  - Pain [Unknown]
  - Pneumonia [Unknown]
  - Non-small cell lung cancer [Unknown]
  - Pneumothorax [Unknown]
  - Inappropriate schedule of product administration [Unknown]
